FAERS Safety Report 17930101 (Version 1)
Quarter: 2020Q2

REPORT INFORMATION
  Report Type: Spontaneous
  Country: US (occurrence: US)
  Receive Date: 20200623
  Receipt Date: 20200623
  Transmission Date: 20200714
  Serious: No
  Sender: FDA-Public Use
  Company Number: None

PATIENT
  Age: 70 Year
  Weight: 71.1 kg

DRUGS (13)
  1. MEGESTROL [Concomitant]
     Active Substance: MEGESTROL
  2. FISH OIL [Concomitant]
     Active Substance: FISH OIL
  3. SYNTHROID [Concomitant]
     Active Substance: LEVOTHYROXINE SODIUM
  4. IBUPROFEN. [Concomitant]
     Active Substance: IBUPROFEN
  5. PRILOSEC [Concomitant]
     Active Substance: OMEPRAZOLE MAGNESIUM
  6. LIDOCAINE. [Concomitant]
     Active Substance: LIDOCAINE
  7. NYSTATIN. [Concomitant]
     Active Substance: NYSTATIN
  8. EXTAVIA [Concomitant]
     Active Substance: INTERFERON BETA-1B
  9. ERGOCALCIFEROL. [Concomitant]
     Active Substance: ERGOCALCIFEROL
  10. PEPCID [Concomitant]
     Active Substance: FAMOTIDINE
  11. CAPECITABINE. [Suspect]
     Active Substance: CAPECITABINE
     Indication: BREAST CANCER
     Route: 048
     Dates: start: 20200205, end: 20200623
  12. COLACE [Concomitant]
     Active Substance: DOCUSATE SODIUM
  13. OXYCODONE [Concomitant]
     Active Substance: OXYCODONE

REACTIONS (1)
  - Disease progression [None]

NARRATIVE: CASE EVENT DATE: 20200623
